FAERS Safety Report 4471467-8 (Version None)
Quarter: 2004Q4

REPORT INFORMATION
  Report Type: 
  Country: None (occurrence: None)
  Receive Date: 20041006
  Receipt Date: 20040921
  Transmission Date: 20050328
  Serious: Yes (Hospitalization)
  Sender: FDA-Public Use
  Company Number: 2004AL000236

PATIENT
  Age: 80 Year
  Sex: Male

DRUGS (2)
  1. KADIAN (MORPHINE SULFATE SUSTAINED RELEASE) CAPSULES, 100 MG (ALPHARMA [Suspect]
     Indication: PAIN
     Dosage: PO
     Route: 048
  2. METHADONE HCL [Suspect]

REACTIONS (16)
  - APNOEA [None]
  - COMA [None]
  - CONFUSIONAL STATE [None]
  - CONSTIPATION [None]
  - DELIRIUM [None]
  - DEPRESSED LEVEL OF CONSCIOUSNESS [None]
  - DRUG TOXICITY [None]
  - DYSPEPSIA [None]
  - DYSPNOEA [None]
  - FALL [None]
  - MARKEDLY REDUCED DIETARY INTAKE [None]
  - MENTAL STATUS CHANGES [None]
  - NEUROPATHIC PAIN [None]
  - PAIN [None]
  - RESPIRATORY DEPRESSION [None]
  - SOMNOLENCE [None]
